FAERS Safety Report 12276816 (Version 1)
Quarter: 2016Q2

REPORT INFORMATION
  Report Type: Spontaneous
  Country: JP (occurrence: JP)
  Receive Date: 20160418
  Receipt Date: 20160418
  Transmission Date: 20160815
  Serious: Yes (Other)
  Sender: FDA-Public Use
  Company Number: JP-NAPPMUNDI-GBR-2016-0035413

PATIENT
  Sex: Female

DRUGS (1)
  1. OXYCODONE HCL PR TABLET [Suspect]
     Active Substance: OXYCODONE HYDROCHLORIDE
     Indication: CANCER PAIN
     Dosage: 10 MG, UNK
     Route: 048

REACTIONS (1)
  - Delirium [Recovered/Resolved]
